FAERS Safety Report 6010162-0 (Version None)
Quarter: 2008Q4

REPORT INFORMATION
  Report Type: 
  Country: None (occurrence: None)
  Receive Date: 20081218
  Receipt Date: 20081216
  Transmission Date: 20090506
  Serious: Yes (Life-Threatening, Other)
  Sender: FDA-Public Use
  Company Number: US-BRISTOL-MYERS SQUIBB COMPANY-14392419

PATIENT
  Age: 44 Year
  Sex: Male

DRUGS (2)
  1. ENTECAVIR [Suspect]
     Indication: HEPATITIS B
     Route: 048
     Dates: start: 20070921
  2. ETHANOL [Concomitant]

REACTIONS (1)
  - HEPATIC NEOPLASM MALIGNANT [None]
